FAERS Safety Report 7103672-6 (Version None)
Quarter: 2010Q4

REPORT INFORMATION
  Report Type: 
  Country: None (occurrence: None)
  Receive Date: 20101109
  Receipt Date: 20101026
  Transmission Date: 20110411
  Serious: Yes (Disabling)
  Sender: FDA-Public Use
  Company Number: 8043795

PATIENT
  Sex: Female
  Weight: 46.9 kg

DRUGS (7)
  1. CERTOLIZUMAB PEGOL [Suspect]
     Indication: CROHN'S DISEASE
     Dosage: (SUBCUTANEOUS), (400 MG, DOSE FREQ.: ONCE MONTHLY SUBCUTANEOUS)
     Route: 058
     Dates: start: 20070102
  2. CERTOLIZUMAB PEGOL [Suspect]
     Indication: CROHN'S DISEASE
     Dosage: (SUBCUTANEOUS), (400 MG, DOSE FREQ.: ONCE MONTHLY SUBCUTANEOUS)
     Route: 058
     Dates: start: 20070720
  3. ASACOL [Concomitant]
  4. FEMIRON MULTI-VITAMINS AND IRON [Concomitant]
  5. NUVARING [Concomitant]
  6. PHENERGAN [Concomitant]
  7. COLESTID [Concomitant]

REACTIONS (11)
  - BLOOD CALCIUM DECREASED [None]
  - BLOOD GLUCOSE INCREASED [None]
  - BLOOD SODIUM DECREASED [None]
  - BLOOD UREA DECREASED [None]
  - GASTROINTESTINAL VIRAL INFECTION [None]
  - HEPATITIS [None]
  - HYPOKALAEMIA [None]
  - MEAN CELL HAEMOGLOBIN CONCENTRATION DECREASED [None]
  - PLATELET COUNT INCREASED [None]
  - STREPTOCOCCUS TEST POSITIVE [None]
  - URINARY TRACT INFECTION [None]
